FAERS Safety Report 4289694-1 (Version None)
Quarter: 2004Q1

REPORT INFORMATION
  Report Type: 
  Country: None (occurrence: None)
  Receive Date: 20040126
  Receipt Date: 20031009
  Transmission Date: 20041129
  Serious: Yes (Other)
  Sender: FDA-Public Use
  Company Number: 348733

PATIENT
  Age: 57 Year
  Sex: Male

DRUGS (9)
  1. SAQUINAVIR (SAQUINAVIR MESYLATE) [Suspect]
     Indication: HIV INFECTION
  2. INDINAVIR [Suspect]
     Indication: HIV INFECTION
  3. RITONAVIR [Suspect]
     Indication: HIV INFECTION
  4. ZIDOVUDINE [Suspect]
     Indication: HIV INFECTION
  5. ABACAVIR (ABACAVIR (SUCCINATE) [Suspect]
     Indication: HIV INFECTION
  6. DIDANOSINE (DIDANOSINE) [Suspect]
     Indication: HIV INFECTION
  7. STAVUDINE [Suspect]
     Indication: HIV INFECTION
  8. EFAVIRENZ [Suspect]
     Indication: HIV INFECTION
  9. LAMIVUDINE [Suspect]
     Indication: HIV INFECTION

REACTIONS (2)
  - HIV INFECTION [None]
  - LIPODYSTROPHY ACQUIRED [None]
